FAERS Safety Report 18223791 (Version 1)
Quarter: 2020Q3

REPORT INFORMATION
  Report Type: Spontaneous
  Country: DE (occurrence: DE)
  Receive Date: 20200902
  Receipt Date: 20200902
  Transmission Date: 20201103
  Serious: Yes (Other)
  Sender: FDA-Public Use
  Company Number: NVSC2020DE235371

PATIENT
  Age: 68 Year
  Sex: Male

DRUGS (4)
  1. CARBOPLATIN. [Suspect]
     Active Substance: CARBOPLATIN
     Indication: NON-SMALL CELL LUNG CANCER
     Dosage: 1 OT, TIW (AUC5, D1, EVERY 3 WEEKS)
     Route: 065
     Dates: start: 20190731, end: 20200214
  2. PEMBROLIZUMAB. [Suspect]
     Active Substance: PEMBROLIZUMAB
     Indication: NON-SMALL CELL LUNG CANCER
     Dosage: 200 MG, Q3W (200MG, D1, EVERY 3 WEEKS)
     Route: 065
     Dates: start: 20190731
  3. PACLITAXEL. [Suspect]
     Active Substance: PACLITAXEL
     Indication: NON-SMALL CELL LUNG CANCER
     Dosage: 100 MG/M2, TIW (100MG/M2, D1, D8, D15, EVERY 3 WEEKS)
     Route: 065
     Dates: start: 20190731, end: 20200214
  4. PEMBROLIZUMAB. [Suspect]
     Active Substance: PEMBROLIZUMAB
     Dosage: UNK (THIRD CYCLE)
     Route: 065
     Dates: start: 20200103

REACTIONS (5)
  - Peroneal nerve palsy [Recovered/Resolved]
  - Alopecia [Recovered/Resolved]
  - Dermatitis [Recovered/Resolved]
  - Epistaxis [Recovered/Resolved]
  - Malignant neoplasm progression [Unknown]

NARRATIVE: CASE EVENT DATE: 20190822
